FAERS Safety Report 6196719-5 (Version None)
Quarter: 2009Q2

REPORT INFORMATION
  Report Type: 
  Country: None (occurrence: None)
  Receive Date: 20090520
  Receipt Date: 20090515
  Transmission Date: 20091009
  Serious: Yes (Life-Threatening, Hospitalization, Disabling, Other)
  Sender: FDA-Public Use
  Company Number: US-MERCK-0904USA02075

PATIENT
  Age: 68 Year
  Sex: Female
  Weight: 96 kg

DRUGS (11)
  1. EMEND [Suspect]
     Indication: PROPHYLAXIS OF NAUSEA AND VOMITING
     Route: 048
     Dates: start: 20081022, end: 20081022
  2. EMEND [Suspect]
     Route: 048
     Dates: start: 20081024, end: 20081024
  3. EMEND [Suspect]
     Route: 048
     Dates: start: 20081023, end: 20081023
  4. EMEND [Suspect]
     Route: 048
     Dates: start: 20081112, end: 20081112
  5. EMEND [Suspect]
     Route: 048
     Dates: start: 20081111, end: 20081111
  6. EMEND [Suspect]
     Route: 048
     Dates: start: 20081110, end: 20081110
  7. IFOSFAMIDE [Interacting]
     Indication: CHEMOTHERAPY
     Route: 042
     Dates: start: 20081022, end: 20081112
  8. ADRIAMYCIN PFS [Concomitant]
     Indication: CHEMOTHERAPY
     Route: 042
     Dates: start: 20081022, end: 20081112
  9. MESNA [Concomitant]
     Indication: PROPHYLAXIS
     Route: 048
     Dates: start: 20081022, end: 20081111
  10. PALONOSETRON HYDROCHLORIDE [Concomitant]
     Indication: ANTIEMETIC SUPPORTIVE CARE
     Route: 042
     Dates: start: 20081022, end: 20081112
  11. DECADRON [Concomitant]
     Indication: ANTIEMETIC SUPPORTIVE CARE
     Route: 042
     Dates: start: 20081022, end: 20081111

REACTIONS (3)
  - DELIRIUM [None]
  - DRUG INTERACTION [None]
  - TOXIC ENCEPHALOPATHY [None]
